FAERS Safety Report 19710211 (Version 1)
Quarter: 2021Q3

REPORT INFORMATION
  Report Type: Spontaneous
  Country: CN (occurrence: CN)
  Receive Date: 20210817
  Receipt Date: 20210817
  Transmission Date: 20211014
  Serious: Yes (Hospitalization, Other)
  Sender: FDA-Public Use
  Company Number: CN-BAXTER-2021BAX024961

PATIENT
  Age: 8 Month
  Sex: Male
  Weight: 9.5 kg

DRUGS (8)
  1. ENDOXAN [Suspect]
     Active Substance: CYCLOPHOSPHAMIDE
     Indication: PRODUCT USED FOR UNKNOWN INDICATION
     Dosage: 30 MG/KG/D, X75%; CADO CHEMOTHERAPY; DAY 1 TO 2; INFUSION TIME: 1 HOUR
     Route: 041
     Dates: start: 20210724, end: 20210725
  2. PIRARUBICIN HYDROCHLORIDE [Suspect]
     Active Substance: PIRARUBICIN HYDROCHLORIDE
     Indication: NEUROBLASTOMA
     Dosage: 1 MG/KG/D, X75%; CADO CHEMOTHERAPY; DAY 1 TO 2; INFUSION TIME: 6 HOURS
     Route: 041
     Dates: start: 20210724, end: 20210725
  3. VINCRISTINE SULPHATE [Suspect]
     Active Substance: VINCRISTINE SULFATE
     Indication: NEUROBLASTOMA
     Dosage: 0.05 MG/KG/D; CADO CHEMOTHERAPY; DAY 1
     Route: 040
     Dates: start: 20210724, end: 20210724
  4. VINCRISTINE SULPHATE [Suspect]
     Active Substance: VINCRISTINE SULFATE
     Dosage: 0.05 MG/KG/D; CADO CHEMOTHERAPY; DAY 15; DOSE RE?INTRODUCED
     Route: 040
  5. ENDOXAN [Suspect]
     Active Substance: CYCLOPHOSPHAMIDE
     Indication: NEUROBLASTOMA
     Dosage: PRIOR DRUG
     Route: 065
  6. PIRARUBICIN HYDROCHLORIDE [Suspect]
     Active Substance: PIRARUBICIN HYDROCHLORIDE
     Dosage: DOSE RE?INTRODUCED
     Route: 041
  7. ENDOXAN [Suspect]
     Active Substance: CYCLOPHOSPHAMIDE
     Dosage: DOSE RE?INTRODUCED
     Route: 041
  8. UROMITEXAN [Suspect]
     Active Substance: MESNA
     Indication: PROPHYLAXIS
     Dosage: 300 MG/M2; 0, 4, 8 HOURS OF CYCLOPHOSPHAMIDE TREATMENT, D1?D2
     Route: 041
     Dates: start: 20210724, end: 20210725

REACTIONS (3)
  - Myelosuppression [Recovered/Resolved]
  - Pyrexia [Unknown]
  - Myelosuppression [Unknown]

NARRATIVE: CASE EVENT DATE: 20210730
